FAERS Safety Report 16598551 (Version 1)
Quarter: 2019Q3

REPORT INFORMATION
  Report Type: Spontaneous
  Country: FR (occurrence: FR)
  Receive Date: 20190719
  Receipt Date: 20190719
  Transmission Date: 20191004
  Serious: Yes (Hospitalization)
  Sender: FDA-Public Use
  Company Number: FR-SEPTODONT-201905367

PATIENT
  Age: 66 Year
  Sex: Female

DRUGS (2)
  1. ATARAX [Suspect]
     Active Substance: HYDROXYZINE HYDROCHLORIDE
     Indication: TOOTH EXTRACTION
     Dosage: 1 DF
     Route: 048
     Dates: start: 20190523, end: 20190524
  2. SEPTANEST [Suspect]
     Active Substance: ARTICAINE HYDROCHLORIDE\EPINEPHRINE BITARTRATE
     Indication: LOCAL ANAESTHESIA
     Dosage: 1 DF
     Route: 004
     Dates: start: 20190524, end: 20190524

REACTIONS (1)
  - Acute generalised exanthematous pustulosis [Recovered/Resolved]

NARRATIVE: CASE EVENT DATE: 20190525
